FAERS Safety Report 9734870 (Version 1)
Quarter: 2013Q4

REPORT INFORMATION
  Report Type: Spontaneous
  Country: GB (occurrence: GB)
  Receive Date: 20131206
  Receipt Date: 20131206
  Transmission Date: 20140711
  Serious: Yes (Hospitalization)
  Sender: FDA-Public Use
  Company Number: GB-ASTRAZENECA-2013SE87593

PATIENT
  Age: 30164 Day
  Sex: Male

DRUGS (4)
  1. CRESTOR [Suspect]
     Indication: HYPERCHOLESTEROLAEMIA
     Route: 048
  2. KEPPRA [Concomitant]
     Indication: EPILEPSY
     Dosage: 1-3, UNKNOWN
  3. ALLOPURINOL [Concomitant]
     Indication: GOUT
  4. AMLODIPINE [Concomitant]

REACTIONS (4)
  - Fall [Unknown]
  - Cerebral haemorrhage [Unknown]
  - Dysphagia [Unknown]
  - Liver function test abnormal [Unknown]
